FAERS Safety Report 10026814 (Version 2)
Quarter: 2014Q2

REPORT INFORMATION
  Report Type: Spontaneous
  Country: US (occurrence: US)
  Receive Date: 20140321
  Receipt Date: 20140409
  Transmission Date: 20141212
  Serious: No
  Sender: FDA-Public Use
  Company Number: US-SHIRE-US201400585

PATIENT
  Sex: 0

DRUGS (2)
  1. LIALDA [Suspect]
     Indication: COLITIS ULCERATIVE
     Dosage: 4.8 G, 1X/DAY:QD (FOUR X  1.2 G TABLETS IN THE MORNING)
     Route: 048
     Dates: start: 20140228
  2. MESALAMINE [Suspect]
     Indication: COLITIS ULCERATIVE
     Dosage: 4 G, 1X/DAY:QD
     Route: 054
     Dates: start: 20140314

REACTIONS (3)
  - Haemorrhage [Not Recovered/Not Resolved]
  - Abdominal pain [Not Recovered/Not Resolved]
  - Drug ineffective [Not Recovered/Not Resolved]
